FAERS Safety Report 9612018 (Version 3)
Quarter: 2013Q4

REPORT INFORMATION
  Report Type: Spontaneous
  Country: US (occurrence: US)
  Receive Date: 20131010
  Receipt Date: 20131024
  Transmission Date: 20140711
  Serious: Yes (Other)
  Sender: FDA-Public Use
  Company Number: US-IPSEN BIOPHARMACEUTICALS, INC.-2013-2825

PATIENT
  Age: 59 Year
  Sex: Female

DRUGS (11)
  1. SOMATULINE DEPOT INJECTION (120MG) [Suspect]
     Indication: HYPOTHALAMO-PITUITARY DISORDER
     Dosage: 120 MG
     Route: 058
     Dates: start: 20080309
  2. SOMATULINE DEPOT INJECTION (120MG) [Suspect]
     Indication: OFF LABEL USE
  3. SOMAVERT [Concomitant]
     Indication: HYPOTHALAMO-PITUITARY DISORDER
     Dosage: 30MG DAILY
     Route: 058
  4. BUSPIRONE HCL [Concomitant]
     Indication: PRODUCT USED FOR UNKNOWN INDICATION
     Dosage: 5MG
     Route: 065
  5. ZOLPIDEM TARTRATE [Concomitant]
     Indication: PRODUCT USED FOR UNKNOWN INDICATION
     Dosage: NOT REPORTED
     Route: 065
  6. NIFEDIPINE ER [Concomitant]
     Indication: PRODUCT USED FOR UNKNOWN INDICATION
     Dosage: 30MG
     Route: 065
  7. BUPROPRION HCL [Concomitant]
     Indication: DEPRESSION
     Dosage: 300MG
     Route: 065
  8. L-THYROXINE SYNTHROID [Concomitant]
     Indication: PRODUCT USED FOR UNKNOWN INDICATION
     Dosage: 150 MICROGRAMS
     Route: 065
  9. CYMBALTA [Concomitant]
     Indication: PRODUCT USED FOR UNKNOWN INDICATION
     Dosage: 30MG
     Route: 065
  10. DIOVAN [Concomitant]
     Indication: PRODUCT USED FOR UNKNOWN INDICATION
     Dosage: 320MG
     Route: 065
  11. VITAMIN D [Concomitant]
     Indication: PRODUCT USED FOR UNKNOWN INDICATION
     Dosage: 5000 IU
     Route: 065

REACTIONS (6)
  - Upper limb fracture [Unknown]
  - Lower limb fracture [Unknown]
  - Adrenal insufficiency [Unknown]
  - Amnesia [Unknown]
  - Muscle spasms [Not Recovered/Not Resolved]
  - Weight decreased [Unknown]
